FAERS Safety Report 6938755-4 (Version None)
Quarter: 2010Q3

REPORT INFORMATION
  Report Type: 
  Country: None (occurrence: None)
  Receive Date: 20100819
  Receipt Date: 20100813
  Transmission Date: 20110219
  Serious: Yes (Other)
  Sender: FDA-Public Use
  Company Number: 20109144

PATIENT
  Sex: Female

DRUGS (1)
  1. LIORESAL [Suspect]
     Indication: MUSCLE SPASTICITY
     Dosage: MCG, DAILY, INTRATHECAL
     Route: 037

REACTIONS (7)
  - BACTERIAL INFECTION [None]
  - DEVICE RELATED INFECTION [None]
  - IMPLANT SITE ERYTHEMA [None]
  - IMPLANT SITE INFECTION [None]
  - IMPLANT SITE PAIN [None]
  - IMPLANT SITE PUSTULES [None]
  - IMPLANT SITE SWELLING [None]
